FAERS Safety Report 20704863 (Version 1)
Quarter: 2022Q2

REPORT INFORMATION
  Report Type: Spontaneous
  Country: IT (occurrence: IT)
  Receive Date: 20220413
  Receipt Date: 20220413
  Transmission Date: 20220721
  Serious: Yes (Other)
  Sender: FDA-Public Use
  Company Number: IT-002147023-NVSC2022IT056183

PATIENT
  Age: 65 Year
  Sex: Female

DRUGS (2)
  1. EVEROLIMUS [Suspect]
     Active Substance: EVEROLIMUS
     Indication: Hormone receptor positive breast cancer
     Dosage: UNK
     Route: 065
     Dates: start: 202107
  2. PACLITAXEL [Concomitant]
     Active Substance: PACLITAXEL
     Indication: Hormone receptor positive breast cancer
     Dosage: UNK
     Route: 065
     Dates: start: 202111

REACTIONS (4)
  - Malignant neoplasm progression [Unknown]
  - Metastases to liver [Unknown]
  - Hormone receptor positive breast cancer [Unknown]
  - Drug ineffective [Unknown]

NARRATIVE: CASE EVENT DATE: 20210701
